FAERS Safety Report 14187701 (Version 2)
Quarter: 2018Q2

REPORT INFORMATION
  Report Type: Spontaneous
  Country: US (occurrence: US)
  Receive Date: 20171114
  Receipt Date: 20180601
  Transmission Date: 20180711
  Serious: No
  Sender: FDA-Public Use
  Company Number: US-ASTRAZENECA-2017SF15391

PATIENT
  Age: 922 Month
  Sex: Female
  Weight: 59 kg

DRUGS (1)
  1. TUDORZA PRESSAIR [Suspect]
     Active Substance: ACLIDINIUM BROMIDE
     Indication: CHRONIC OBSTRUCTIVE PULMONARY DISEASE
     Route: 055
     Dates: start: 2016

REACTIONS (4)
  - Intentional device misuse [Unknown]
  - Device failure [Unknown]
  - Chronic obstructive pulmonary disease [Unknown]
  - Product quality issue [Unknown]

NARRATIVE: CASE EVENT DATE: 201602
